FAERS Safety Report 5682300-0 (Version None)
Quarter: 2008Q1

REPORT INFORMATION
  Report Type: 
  Country: None (occurrence: None)
  Receive Date: 20080327
  Receipt Date: 20080319
  Transmission Date: 20080703
  Serious: Yes (Hospitalization)
  Sender: FDA-Public Use
  Company Number: PHBS2008ES03578

PATIENT
  Age: 61 Year
  Sex: Female

DRUGS (2)
  1. CARBAMAZEPINE [Suspect]
     Indication: EPILEPSY
     Route: 065
  2. LEVETIRACETAM [Concomitant]
     Route: 065

REACTIONS (13)
  - ASTHENIA [None]
  - CARDIAC DISORDER [None]
  - CARDIAC FAILURE ACUTE [None]
  - CHEST PAIN [None]
  - DEPRESSED LEVEL OF CONSCIOUSNESS [None]
  - DYSPNOEA [None]
  - ELECTROCARDIOGRAM ABNORMAL [None]
  - PALLOR [None]
  - RALES [None]
  - STATUS EPILEPTICUS [None]
  - STRESS CARDIOMYOPATHY [None]
  - TROPONIN I INCREASED [None]
  - VENTRICULAR DYSKINESIA [None]
